FAERS Safety Report 21454173 (Version 1)
Quarter: 2022Q4

REPORT INFORMATION
  Report Type: Report from Study
  Country: CN (occurrence: CN)
  Receive Date: 20221013
  Receipt Date: 20221013
  Transmission Date: 20230113
  Serious: Yes (Other)
  Sender: FDA-Public Use
  Company Number: CN-GILEAD-2022-0601171

PATIENT
  Age: 59 Year
  Sex: Female

DRUGS (1)
  1. ADEFOVIR DIPIVOXIL [Suspect]
     Active Substance: ADEFOVIR DIPIVOXIL
     Indication: Hepatitis B
     Dosage: UNK
     Route: 065

REACTIONS (1)
  - Hypophosphataemic osteomalacia [Unknown]
